FAERS Safety Report 15640672 (Version 2)
Quarter: 2018Q4

REPORT INFORMATION
  Report Type: Report from Study
  Country: GT (occurrence: GT)
  Receive Date: 20181120
  Receipt Date: 20181210
  Transmission Date: 20190205
  Serious: Yes (Hospitalization)
  Sender: FDA-Public Use
  Company Number: GT-SA-2018SA314932

PATIENT
  Age: 74 Year
  Sex: Female

DRUGS (1)
  1. HYDROCHLOROTHIAZIDE/IRBESARTAN [Suspect]
     Active Substance: HYDROCHLOROTHIAZIDE\IRBESARTAN
     Indication: HYPERTENSION
     Dosage: ? TO 1 ORAL TABLET OF 300 MG OF IRBESARTAN + 12.5 MG OF HYDROCHLOROTHIAZIDE, QD
     Route: 048
     Dates: start: 2011

REACTIONS (3)
  - Movement disorder [Unknown]
  - Intentional product misuse [Unknown]
  - Tongue neoplasm malignant stage unspecified [Recovered/Resolved with Sequelae]

NARRATIVE: CASE EVENT DATE: 2013
